FAERS Safety Report 9165702 (Version 2)
Quarter: 2013Q1

REPORT INFORMATION
  Report Type: Spontaneous
  Country: US (occurrence: None)
  Receive Date: 20130228
  Receipt Date: 20130314
  Transmission Date: 20140127
  Serious: Yes (Hospitalization)
  Sender: FDA-Public Use
  Company Number: JPI-P-029932

PATIENT
  Age: 59 Year
  Sex: Female
  Weight: 45.36 kg

DRUGS (8)
  1. XYREM [Suspect]
     Indication: NARCOLEPSY
     Dosage: 6 GM (3 GM, 2 IN 1 D), ORAL
     Route: 048
     Dates: start: 20070214
  2. XYREM [Suspect]
     Indication: SOMNOLENCE
     Dosage: 6 GM (3 GM, 2 IN 1 D), ORAL
     Route: 048
     Dates: start: 20070214
  3. BUPROPION HYDROCHLORIDE [Concomitant]
  4. ZIPRASIDONE [Concomitant]
  5. CLONAZEPAM [Concomitant]
  6. LISINOPRIL [Concomitant]
  7. AMPHETAMINE AND DEXTROAMPHETAMINE MIXED SALTS [Concomitant]
  8. ACETYLSALICYLIC ACID [Concomitant]

REACTIONS (5)
  - Somnambulism [None]
  - Fall [None]
  - Humerus fracture [None]
  - Hypothyroidism [None]
  - Insomnia [None]
